FAERS Safety Report 16860607 (Version 2)
Quarter: 2019Q4

REPORT INFORMATION
  Report Type: Spontaneous
  Country: US (occurrence: US)
  Receive Date: 20190927
  Receipt Date: 20191010
  Transmission Date: 20200122
  Serious: Yes (Hospitalization, Other)
  Sender: FDA-Public Use
  Company Number: US-APOTEX-2019AP022726

PATIENT

DRUGS (1)
  1. LABETALOL [Suspect]
     Active Substance: LABETALOL\LABETALOL HYDROCHLORIDE
     Indication: HYPERTENSIVE EMERGENCY
     Dosage: UNK (AT HIGHER THAN THE MAXIMUM RECOMMENDED DOSE OF 300 MG WITHIN 24 HOURS)
     Route: 041

REACTIONS (3)
  - Hypotension [Recovered/Resolved]
  - Prescribed overdose [Unknown]
  - Bradycardia [Recovered/Resolved]
